FAERS Safety Report 17130416 (Version 7)
Quarter: 2020Q3

REPORT INFORMATION
  Report Type: Spontaneous
  Country: US (occurrence: US)
  Receive Date: 20191209
  Receipt Date: 20200902
  Transmission Date: 20201105
  Serious: Yes (Hospitalization, Other)
  Sender: FDA-Public Use
  Company Number: US-FRESENIUS KABI-FK201913426

PATIENT
  Age: 35 Year
  Sex: Female
  Weight: 62 kg

DRUGS (11)
  1. MONTELUKAST [Concomitant]
     Active Substance: MONTELUKAST SODIUM
     Indication: PREMEDICATION
     Dosage: STILL ONGOING
     Route: 065
     Dates: start: 20191110
  2. TISOTUMAB VEDOTIN. [Suspect]
     Active Substance: TISOTUMAB VEDOTIN
     Dosage: 2.0 MG/KG, 1Q3W
     Route: 041
     Dates: start: 20200129
  3. OLANZAPINE. [Concomitant]
     Active Substance: OLANZAPINE
     Indication: PROPHYLAXIS
     Dosage: STILL ONGOING
     Route: 065
     Dates: start: 20191112
  4. CARBOPLATIN (MANUFACTURER UNKNOWN) [Suspect]
     Active Substance: CARBOPLATIN
     Route: 065
     Dates: start: 20200129
  5. LORAZEPAM. [Concomitant]
     Active Substance: LORAZEPAM
     Indication: NAUSEA
  6. TISOTUMAB VEDOTIN. [Suspect]
     Active Substance: TISOTUMAB VEDOTIN
     Indication: CERVIX CANCER METASTATIC
     Dosage: 2.0 MG/KG, 1Q3W
     Route: 041
     Dates: start: 20191113, end: 20191223
  7. OLANZAPINE. [Concomitant]
     Active Substance: OLANZAPINE
     Indication: NAUSEA
  8. LORAZEPAM. [Concomitant]
     Active Substance: LORAZEPAM
     Indication: ANXIETY
     Dosage: STILL ONGOING
     Route: 065
     Dates: start: 20190401
  9. CARBOPLATIN (MANUFACTURER UNKNOWN) [Suspect]
     Active Substance: CARBOPLATIN
     Indication: CERVIX CANCER METASTATIC
     Dosage: 1 DF EQUAL TO 5 AUC, 1Q3W?STILL ONGOING
     Route: 041
     Dates: start: 20191113
  10. TISOTUMAB VEDOTIN. [Suspect]
     Active Substance: TISOTUMAB VEDOTIN
     Dosage: STILL ONGOING
     Route: 041
     Dates: start: 20191113
  11. COLECALCIFEROL [Concomitant]
     Active Substance: CHOLECALCIFEROL
     Indication: SUPPLEMENTATION THERAPY
     Dosage: STILL ONGOING
     Route: 065
     Dates: start: 20141101

REACTIONS (2)
  - Vision blurred [Recovered/Resolved]
  - Febrile neutropenia [Recovered/Resolved]

NARRATIVE: CASE EVENT DATE: 20191120
